FAERS Safety Report 22099342 (Version 2)
Quarter: 2023Q2

REPORT INFORMATION
  Report Type: Report from Study
  Country: US (occurrence: US)
  Receive Date: 20230315
  Receipt Date: 20230508
  Transmission Date: 20230722
  Serious: Yes (Other)
  Sender: FDA-Public Use
  Company Number: US-BAYER-2023A029102

PATIENT
  Age: 55 Year

DRUGS (1)
  1. ALKA-SELTZER PLUS COLD AND COUGH [Suspect]
     Active Substance: ACETAMINOPHEN\CHLORPHENIRAMINE\DEXTROMETHORPHAN\PHENYLEPHRINE
     Dosage: UNK

REACTIONS (5)
  - Foreign body in throat [Unknown]
  - Odynophagia [None]
  - Product use complaint [Unknown]
  - Pharyngeal swelling [Unknown]
  - Pharyngeal contusion [Unknown]
